FAERS Safety Report 7423508-3 (Version None)
Quarter: 2011Q2

REPORT INFORMATION
  Report Type: 
  Country: None (occurrence: None)
  Receive Date: 20110419
  Receipt Date: 20110304
  Transmission Date: 20111010
  Serious: Yes (Hospitalization, Other)
  Sender: FDA-Public Use
  Company Number: US-BAYER-201038323NA

PATIENT
  Age: 21 Year
  Sex: Female
  Weight: 45.351 kg

DRUGS (9)
  1. YAZ [Suspect]
     Indication: PRODUCT USED FOR UNKNOWN INDICATION
     Dosage: UNK
     Dates: start: 20020101, end: 20060101
  2. PRILOSEC [Concomitant]
  3. YASMIN [Suspect]
     Indication: PRODUCT USED FOR UNKNOWN INDICATION
     Dosage: UNK
     Dates: start: 20020101, end: 20060101
  4. MOTRIN [Concomitant]
     Indication: HEADACHE
  5. IBUPROFEN [Concomitant]
     Indication: HEADACHE
  6. OMEPRAZOLE [Concomitant]
  7. OCELLA [Suspect]
     Indication: PRODUCT USED FOR UNKNOWN INDICATION
  8. ADVIL LIQUI-GELS [Concomitant]
     Indication: HEADACHE
  9. DARVOCET-N 50 [Concomitant]
     Dosage: UNK
     Dates: start: 20060301

REACTIONS (4)
  - INJURY [None]
  - CHOLELITHIASIS [None]
  - CHOLECYSTITIS ACUTE [None]
  - GALLBLADDER DISORDER [None]
